FAERS Safety Report 15362235 (Version 2)
Quarter: 2018Q3

REPORT INFORMATION
  Report Type: Spontaneous
  Country: IN (occurrence: IN)
  Receive Date: 20180907
  Receipt Date: 20180912
  Transmission Date: 20181010
  Serious: Yes (Life-Threatening, Hospitalization, Other)
  Sender: FDA-Public Use
  Company Number: IN-PFIZER INC-2018358362

PATIENT
  Age: 13 Year
  Sex: Male

DRUGS (7)
  1. ETOPOSIDE. [Suspect]
     Active Substance: ETOPOSIDE
     Indication: ACUTE MYELOID LEUKAEMIA
     Dosage: UNK, CYCLIC
  2. LEVOFLOXACIN. [Concomitant]
     Active Substance: LEVOFLOXACIN
     Indication: ANTIBIOTIC PROPHYLAXIS
     Dosage: UNK
  3. CYTARABINE. [Suspect]
     Active Substance: CYTARABINE
     Indication: ACUTE MYELOID LEUKAEMIA
     Dosage: UNK, CYCLIC
     Route: 037
  4. CYTARABINE. [Suspect]
     Active Substance: CYTARABINE
     Dosage: UNK, CYCLIC (INTENSIFICATION WITH CYTARABINE AND ETOPOSIDE)
  5. DAUNORUBICIN HCL [Suspect]
     Active Substance: DAUNORUBICIN HYDROCHLORIDE
     Indication: ACUTE MYELOID LEUKAEMIA
     Dosage: UNK, CYCLIC
  6. ETOPOSIDE. [Suspect]
     Active Substance: ETOPOSIDE
     Dosage: UNK, CYCLIC  (INTENSIFICATION WITH CYTARABINE AND ETOPOSIDE)
  7. VORICONAZOLE. [Suspect]
     Active Substance: VORICONAZOLE
     Indication: ANTIFUNGAL PROPHYLAXIS
     Dosage: UNK

REACTIONS (3)
  - Gallbladder empyema [Recovered/Resolved]
  - Neutropenia [Recovered/Resolved]
  - Bacteraemia [Unknown]
